FAERS Safety Report 19102753 (Version 1)
Quarter: 2021Q2

REPORT INFORMATION
  Report Type: Spontaneous
  Country: US (occurrence: US)
  Receive Date: 20210407
  Receipt Date: 20210407
  Transmission Date: 20210717
  Serious: No
  Sender: FDA-Public Use
  Company Number: None

PATIENT
  Age: 86 Year
  Sex: Female
  Weight: 81 kg

DRUGS (22)
  1. BOSULIF [Suspect]
     Active Substance: BOSUTINIB MONOHYDRATE
     Indication: CHRONIC MYELOID LEUKAEMIA
     Route: 048
     Dates: start: 20210211, end: 20210407
  2. CYANOCOBALAMIN. [Concomitant]
     Active Substance: CYANOCOBALAMIN
  3. METOPROLOL TARTRATE. [Concomitant]
     Active Substance: METOPROLOL TARTRATE
  4. ASPIRIN 81 [Concomitant]
     Active Substance: ASPIRIN
  5. ATORVASTATIN CALCIUM. [Concomitant]
     Active Substance: ATORVASTATIN CALCIUM
  6. ELIQUIS [Concomitant]
     Active Substance: APIXABAN
  7. TORSEMIDE. [Concomitant]
     Active Substance: TORSEMIDE
  8. NITROSTAT [Concomitant]
     Active Substance: NITROGLYCERIN
  9. SENOKOT?S [Concomitant]
     Active Substance: DOCUSATE SODIUM\SENNOSIDES
  10. ACETAMINOPHEN. [Concomitant]
     Active Substance: ACETAMINOPHEN
  11. EPINEPHRINE. [Concomitant]
     Active Substance: EPINEPHRINE
  12. LORATADINE. [Concomitant]
     Active Substance: LORATADINE
  13. MIRALAX [Concomitant]
     Active Substance: POLYETHYLENE GLYCOL 3350
  14. MUPIROCIN. [Concomitant]
     Active Substance: MUPIROCIN
  15. SINEMET [Concomitant]
     Active Substance: CARBIDOPA\LEVODOPA
  16. CELEXA [Concomitant]
     Active Substance: CITALOPRAM HYDROBROMIDE
  17. FAMOTIDINE. [Concomitant]
     Active Substance: FAMOTIDINE
  18. MAGNESIUM HYDROXIDE. [Concomitant]
     Active Substance: MAGNESIUM HYDROXIDE
  19. CALCIUM [Concomitant]
     Active Substance: CALCIUM
  20. FERROUS SULFATE. [Concomitant]
     Active Substance: FERROUS SULFATE
  21. MAGNESIUM OXIDE. [Concomitant]
     Active Substance: MAGNESIUM OXIDE
  22. GLUCOSE [Concomitant]
     Active Substance: DEXTROSE

REACTIONS (3)
  - Blood creatinine increased [None]
  - Hypophagia [None]
  - Fatigue [None]

NARRATIVE: CASE EVENT DATE: 20210407
